FAERS Safety Report 4526543-8 (Version None)
Quarter: 2004Q4

REPORT INFORMATION
  Report Type: 
  Country: None (occurrence: None)
  Receive Date: 20041210
  Receipt Date: 20041124
  Transmission Date: 20050328
  Serious: Yes (Hospitalization)
  Sender: FDA-Public Use
  Company Number: WAES 0411USA50121

PATIENT
  Age: 62 Year
  Sex: Male
  Weight: 98.8842 kg

DRUGS (5)
  1. VIOXX [Suspect]
     Indication: NEOPLASM PROPHYLAXIS
     Dosage: 25 MG/DAILY/PO
     Route: 048
     Dates: start: 20031223, end: 20040930
  2. ATORVASTATIN CALCIUM [Concomitant]
  3. LEVOTHYROXINE SODIUM [Concomitant]
  4. TAMSULOSIN HYDROCHLORIDE [Concomitant]
  5. TESTOSTERONE [Concomitant]

REACTIONS (2)
  - BUNDLE BRANCH BLOCK [None]
  - CORONARY ARTERY OCCLUSION [None]
